FAERS Safety Report 24725840 (Version 2)
Quarter: 2025Q1

REPORT INFORMATION
  Report Type: Spontaneous
  Country: US (occurrence: US)
  Receive Date: 20241212
  Receipt Date: 20250102
  Transmission Date: 20250408
  Serious: Yes (Other)
  Sender: TEVA
  Company Number: US-TEVA-VS-3272645

PATIENT
  Age: 49 Year
  Sex: Male

DRUGS (2)
  1. PROPOFOL [Suspect]
     Active Substance: PROPOFOL
     Indication: Induction of anaesthesia
     Route: 065
  2. SUCCINYLCHOLINE CHLORIDE [Suspect]
     Active Substance: SUCCINYLCHOLINE CHLORIDE
     Indication: Muscle relaxant therapy
     Route: 042

REACTIONS (3)
  - Hyperthermia malignant [Unknown]
  - Hypertransaminasaemia [Recovering/Resolving]
  - Rhabdomyolysis [Recovering/Resolving]
